FAERS Safety Report 8934599 (Version 2)
Quarter: 2012Q4

REPORT INFORMATION
  Report Type: 
  Country: US (occurrence: US)
  Receive Date: 20121129
  Receipt Date: 20121226
  Transmission Date: 20130627
  Serious: No
  Sender: FDA-Public Use
  Company Number: US-VERTEX PHARMACEUTICAL INC.-2012-025101

PATIENT
  Age: 48 Year
  Sex: Female
  Weight: 65 kg

DRUGS (11)
  1. INCIVEK [Suspect]
     Indication: HEPATITIS C
     Dosage: 750 mg, tid
     Route: 048
     Dates: start: 20121120
  2. RIBAVIRIN [Suspect]
     Indication: HEPATITIS C
     Dosage: 3 tabs am, 2 tabs pm, qd
     Dates: start: 20121119
  3. PEGINTRON                          /01543001/ [Suspect]
     Indication: HEPATITIS C
     Dosage: 180 ?g, qw
     Route: 058
     Dates: start: 20121119
  4. SEROQUEL [Concomitant]
     Dosage: 100 mg, UNK
  5. FLUTICASONE [Concomitant]
     Dosage: 50 ?g, UNK
  6. MIRTAZAPINE [Concomitant]
     Dosage: 15 mg, UNK
  7. DIFLUNISAL [Concomitant]
     Dosage: 500 mg, UNK
  8. DOCUSATE SOD [Concomitant]
     Dosage: 100 mg, UNK
  9. MULTIVITAMIN                       /00097801/ [Concomitant]
  10. LORATADINE [Concomitant]
  11. BENADRYL                           /00000402/ [Concomitant]
     Dosage: 25 mg, UNK

REACTIONS (1)
  - Inappropriate schedule of drug administration [Recovered/Resolved]
